FAERS Safety Report 24746937 (Version 1)
Quarter: 2024Q4

REPORT INFORMATION
  Report Type: Report from Study
  Country: CA (occurrence: CA)
  Receive Date: 20241218
  Receipt Date: 20241218
  Transmission Date: 20250115
  Serious: Yes (Other)
  Sender: AMGEN
  Company Number: CA-AMGEN-CANSL2024245292

PATIENT
  Sex: Female

DRUGS (1)
  1. ADALIMUMAB [Suspect]
     Active Substance: ADALIMUMAB
     Indication: Crohn^s disease
     Dosage: UNK, Q2WK
     Route: 065
     Dates: start: 20211223

REACTIONS (4)
  - Neoplasm malignant [Unknown]
  - Inflammation [Not Recovered/Not Resolved]
  - Bowel movement irregularity [Recovered/Resolved]
  - Abdominal pain [Unknown]
